FAERS Safety Report 8486424-4 (Version None)
Quarter: 2012Q3

REPORT INFORMATION
  Report Type: 
  Country: None (occurrence: None)
  Receive Date: 20120703
  Receipt Date: 20120618
  Transmission Date: 20120928
  Serious: Yes (Hospitalization)
  Sender: FDA-Public Use
  Company Number: CHPA2012US013265

PATIENT
  Age: 73 Year
  Sex: Female

DRUGS (1)
  1. BENEFIBER SUGAR FREE [Suspect]
     Indication: DIVERTICULITIS
     Dosage: 2-3 DF, QD
     Route: 048
     Dates: start: 20110101

REACTIONS (3)
  - OFF LABEL USE [None]
  - DIVERTICULITIS [None]
  - UNDERDOSE [None]
